FAERS Safety Report 8289807-0 (Version None)
Quarter: 2012Q2

REPORT INFORMATION
  Report Type: 
  Country: None (occurrence: None)
  Receive Date: 20120417
  Receipt Date: 20120411
  Transmission Date: 20120825
  Serious: No
  Sender: FDA-Public Use
  Company Number: US-PFIZER INC-2012019190

PATIENT
  Sex: Male
  Weight: 102 kg

DRUGS (3)
  1. LYRICA [Suspect]
     Indication: NEURALGIA
  2. LORTAB [Concomitant]
     Indication: PAIN
     Dosage: 10/500 MG, DAILY
  3. LYRICA [Suspect]
     Indication: NERVOUS SYSTEM DISORDER
     Dosage: 75 MG, 3X/DAY
     Route: 048
     Dates: start: 20110101

REACTIONS (5)
  - PAIN IN EXTREMITY [None]
  - NEUROPATHY PERIPHERAL [None]
  - OEDEMA PERIPHERAL [None]
  - GAIT DISTURBANCE [None]
  - PARAESTHESIA [None]
